FAERS Safety Report 10497951 (Version 2)
Quarter: 2014Q4

REPORT INFORMATION
  Report Type: Spontaneous
  Country: US (occurrence: None)
  Receive Date: 20141002
  Receipt Date: 20141014
  Transmission Date: 20150528
  Serious: Yes (Disabling, Other)
  Sender: FDA-Public Use
  Company Number: FK201403870

PATIENT
  Age: 75 Year
  Sex: Male
  Weight: 78.93 kg

DRUGS (19)
  1. ASPIR-LOW (ACETYLSALICYLIC ACID) [Concomitant]
  2. METOPROLOL TARTRATE (METOPROLOL TARTRATE) [Concomitant]
  3. ACULAR (KETOROLAC TROMETHAMINE) [Concomitant]
  4. SENNA [Concomitant]
     Active Substance: SENNA LEAF\SENNOSIDES\SENNOSIDES A AND B
  5. GENTEAL GEL (GENTEAL) [Concomitant]
  6. PRILOSEC DELAYED RELEASE (OMEPRAZOLE) [Concomitant]
  7. BISACODYL DELAYED RELEASE (BISACODYL) [Concomitant]
  8. OMEPRAZOLE (OMEPRAZOLE) [Concomitant]
     Active Substance: OMEPRAZOLE
  9. ALAWAY (KETOTIFEN FUMARATE) [Concomitant]
  10. LOTEMAX (LOTEPREDNOL ETABONATE) [Concomitant]
  11. VIGAMOX (MOXIFLOXACIN HYDROCHLORIDE) [Concomitant]
  12. PRED FORTE (PREDNISOLONE ACETATE) [Concomitant]
  13. CYANOCOBALAMIN (CYANOCOBALAMIN) (CYANOCOBALAMIN) [Concomitant]
     Active Substance: CYANOCOBALAMIN
  14. MULTIVITAMIN  (VIGRAN) [Concomitant]
  15. NATURAL FIBER LAXATIVE THERAPY (POLYCARBOPHIL CALCIUM) [Concomitant]
  16. ROBITUSSIN CHEST CONGESTION (GUAIFENESIN) [Concomitant]
  17. GENTAMICIN SULFATE. [Suspect]
     Active Substance: GENTAMICIN SULFATE
     Indication: PRODUCT USED FOR UNKNOWN INDICATION
     Route: 031
     Dates: start: 20130910, end: 20130910
  18. FOLIC ACID (FOLIC ACID) [Concomitant]
     Active Substance: FOLIC ACID
  19. SIMVASTATIN (SIMVASTATIN) [Concomitant]
     Active Substance: SIMVASTATIN

REACTIONS (10)
  - Off label use [None]
  - Intraocular pressure increased [None]
  - Blindness [None]
  - Corneal oedema [None]
  - Corneal degeneration [None]
  - Eye injury [None]
  - Toxic anterior segment syndrome [None]
  - Incorrect route of drug administration [None]
  - Eye pain [None]
  - Hallucination, visual [None]
